FAERS Safety Report 9577717 (Version 4)
Quarter: 2015Q4

REPORT INFORMATION
  Report Type: Report from Study
  Country: BE (occurrence: BE)
  Receive Date: 20131001
  Receipt Date: 20151109
  Transmission Date: 20160305
  Serious: Yes (Death, Hospitalization, Other)
  Sender: FDA-Public Use
  Company Number: BE-BRISTOL-MYERS SQUIBB COMPANY-17293630

PATIENT
  Age: 59 Year
  Sex: Female
  Weight: 85.4 kg

DRUGS (16)
  1. DAFALGAN [Concomitant]
     Active Substance: ACETAMINOPHEN
     Indication: PAIN
     Dosage: 1000 MG, UNK
     Route: 048
  2. INNOHEP [Concomitant]
     Active Substance: TINZAPARIN SODIUM
     Indication: PULMONARY EMBOLISM
     Dosage: 1DF=14000 IU
     Route: 058
     Dates: start: 20100220
  3. TRITACE [Concomitant]
     Active Substance: RAMIPRIL
     Indication: DYSPNOEA
     Dosage: 2.5 MG, QD
     Route: 048
     Dates: start: 20100225
  4. ZYRTEC [Concomitant]
     Active Substance: CETIRIZINE HYDROCHLORIDE
     Indication: HYPERSENSITIVITY
     Dosage: 10 MG, UNK
     Route: 048
     Dates: start: 20091124
  5. BEVACIZUMAB [Concomitant]
     Active Substance: BEVACIZUMAB
     Indication: BREAST CANCER METASTATIC
     Dosage: 1 DF: 10UNITS NOS  LAST DOSE PRIOR TO SAE: 03FEB2010
     Route: 042
     Dates: start: 20091223, end: 20100203
  6. ZOLPIDEM [Concomitant]
     Active Substance: ZOLPIDEM\ZOLPIDEM TARTRATE
     Indication: INSOMNIA
     Dosage: 10 MG, UNK
     Route: 048
  7. HYDROCORTISONE. [Concomitant]
     Active Substance: HYDROCORTISONE
     Indication: STOMATITIS
     Dosage: 1DF- 1 TABLE SPOON
     Route: 048
     Dates: start: 20100203
  8. MEDROL [Concomitant]
     Active Substance: METHYLPREDNISOLONE
     Indication: DYSPNOEA
     Dosage: 32 MG, UNK
     Route: 048
     Dates: start: 20100224
  9. PACLITAXEL. [Suspect]
     Active Substance: PACLITAXEL
     Indication: BREAST CANCER METASTATIC
     Dosage: 1 DF: 90UNITS NOS  LAST DOSE PRIOR TO SAE: 03FEB2010
     Route: 042
     Dates: start: 20091125, end: 20100203
  10. LASIX [Concomitant]
     Active Substance: FUROSEMIDE
     Indication: DYSPNOEA
     Dosage: 40 MG, 3 TIMES/WK
     Route: 048
     Dates: start: 20100220
  11. SERLAIN [Concomitant]
     Active Substance: SERTRALINE HYDROCHLORIDE
     Indication: PRODUCT USED FOR UNKNOWN INDICATION
     Dosage: 50 MG, QD
     Route: 065
  12. LIDOCAINE. [Concomitant]
     Active Substance: LIDOCAINE
     Indication: STOMATITIS
     Dosage: 1DF- 1 TABLE SPOON
     Route: 048
     Dates: start: 20100203
  13. EMCONCOR [Concomitant]
     Active Substance: BISOPROLOL FUMARATE
     Indication: DYSPNOEA
     Dosage: 1.25 MG, QD
     Route: 048
     Dates: start: 20100225
  14. DEXAMETHASONE. [Concomitant]
     Active Substance: DEXAMETHASONE
     Indication: HYPERSENSITIVITY
     Dosage: 10 MG, UNK
     Route: 048
     Dates: start: 20091124
  15. NYSTATIN. [Concomitant]
     Active Substance: NYSTATIN
     Indication: STOMATITIS
     Dosage: 1DF- 1 TABLE SPOON
     Route: 048
     Dates: start: 20100203
  16. DEXTROMETHORPHAN HYDROBROMIDE. [Concomitant]
     Active Substance: DEXTROMETHORPHAN HYDROBROMIDE
     Indication: NASOPHARYNGITIS
     Dosage: 7.5 MG, UNK
     Route: 048
     Dates: start: 20100203

REACTIONS (3)
  - Dyspnoea [Unknown]
  - Pulmonary embolism [Not Recovered/Not Resolved]
  - Left ventricular dysfunction [Fatal]

NARRATIVE: CASE EVENT DATE: 20100214
